FAERS Safety Report 7049334-5 (Version None)
Quarter: 2010Q4

REPORT INFORMATION
  Report Type: 
  Country: None (occurrence: None)
  Receive Date: 20101007
  Receipt Date: 20100719
  Transmission Date: 20110411
  Serious: Yes (Death, Hospitalization)
  Sender: FDA-Public Use
  Company Number: 2009AC000453

PATIENT
  Age: 77 Year
  Sex: Male
  Weight: 59.4212 kg

DRUGS (40)
  1. DIGOXIN [Suspect]
     Dosage: 0.25 MG; QD; PO
     Route: 048
  2. DIGOXIN [Suspect]
     Dosage: 0.125 MG; QD; PO
     Route: 048
     Dates: start: 19980201
  3. ACETAMINOPHEN [Concomitant]
  4. TYLENOL W/ CODEINE NO. 3 [Concomitant]
  5. NITROGLYCERIN [Concomitant]
  6. HISMANAL [Concomitant]
  7. MOTRIN [Concomitant]
  8. ALDACTONE [Concomitant]
  9. SOTALOL [Concomitant]
  10. PRILOSEC [Concomitant]
  11. CARAFATE [Concomitant]
  12. PREDNISONE [Concomitant]
  13. FERROUS SULFATE [Concomitant]
  14. COZAAR [Concomitant]
  15. NEURONTIN [Concomitant]
  16. LASIX [Concomitant]
  17. VICODIN [Concomitant]
  18. AMIODARONE HCL [Concomitant]
  19. COREG [Concomitant]
  20. COLACE [Concomitant]
  21. FLOMAX [Concomitant]
  22. CEPHALEXIN [Concomitant]
  23. LEVAQUIN [Concomitant]
  24. METRONIDAZOLE [Concomitant]
  25. PREDNISONE [Concomitant]
  26. PEPCID [Concomitant]
  27. INDERAL [Concomitant]
  28. LASIX [Concomitant]
  29. HYDROCHLOROTHIAZIDE [Concomitant]
  30. CARDIZEM [Concomitant]
  31. SPIRONOLACTONE [Concomitant]
  32. COREG [Concomitant]
  33. AMIODARONE HCL [Concomitant]
  34. ACETAMINOPHEN [Concomitant]
  35. COLASE [Concomitant]
  36. FLOXIN [Concomitant]
  37. OXYCODONE HCL [Concomitant]
  38. NEURONTIN [Concomitant]
  39. SPIRONOLACTONE [Concomitant]
  40. MORPHINE [Concomitant]

REACTIONS (71)
  - ALLERGY TO ARTHROPOD STING [None]
  - ANAEMIA [None]
  - ARTERIOSCLEROSIS CORONARY ARTERY [None]
  - ATRIAL FIBRILLATION [None]
  - BENIGN PROSTATIC HYPERPLASIA [None]
  - BLOOD UREA INCREASED [None]
  - BONE DISORDER [None]
  - CACHEXIA [None]
  - CARDIAC FAILURE CONGESTIVE [None]
  - CARDIOACTIVE DRUG LEVEL ABOVE THERAPEUTIC [None]
  - CARDIOMEGALY [None]
  - CEREBRAL ATROPHY [None]
  - CHEST PAIN [None]
  - CHRONIC OBSTRUCTIVE PULMONARY DISEASE [None]
  - COLITIS [None]
  - CONSTIPATION [None]
  - COUGH [None]
  - DEHYDRATION [None]
  - DIVERTICULUM INTESTINAL [None]
  - DRUG LEVEL FLUCTUATING [None]
  - DYSPNOEA [None]
  - ECONOMIC PROBLEM [None]
  - ELECTROCARDIOGRAM ST-T CHANGE [None]
  - FALL [None]
  - FLUID OVERLOAD [None]
  - GAIT DISTURBANCE [None]
  - HAEMATOMA [None]
  - HELICOBACTER INFECTION [None]
  - HIATUS HERNIA [None]
  - HYDROPNEUMOTHORAX [None]
  - HYPERGLYCAEMIA [None]
  - HYPERTENSION [None]
  - HYPOKALAEMIA [None]
  - HYPOTENSION [None]
  - HYPOXIA [None]
  - INTERSTITIAL LUNG DISEASE [None]
  - JOINT INJURY [None]
  - KYPHOSIS [None]
  - LACERATION [None]
  - LEUKOCYTOSIS [None]
  - LOSS OF CONSCIOUSNESS [None]
  - LUNG NEOPLASM [None]
  - MITRAL VALVE INCOMPETENCE [None]
  - MUSCLE ATROPHY [None]
  - NEGLECT OF PERSONAL APPEARANCE [None]
  - OEDEMA PERIPHERAL [None]
  - OSTEOPOROSIS [None]
  - PAIN [None]
  - PELVIC FRACTURE [None]
  - PNEUMONIA [None]
  - PRESYNCOPE [None]
  - PULMONARY FIBROSIS [None]
  - PULMONARY HYPERTENSION [None]
  - PULMONARY VALVE INCOMPETENCE [None]
  - PYREXIA [None]
  - RECTAL POLYP [None]
  - RESPIRATORY DISTRESS [None]
  - RESPIRATORY FAILURE [None]
  - RHEUMATOID ARTHRITIS [None]
  - SKULL FRACTURED BASE [None]
  - SPINAL COMPRESSION FRACTURE [None]
  - STRESS [None]
  - SYNCOPE [None]
  - TACHYCARDIA [None]
  - THERAPEUTIC AGENT TOXICITY [None]
  - THROMBOCYTOPENIA [None]
  - TRAUMATIC BRAIN INJURY [None]
  - UNEVALUABLE EVENT [None]
  - UNRESPONSIVE TO STIMULI [None]
  - URINARY TRACT INFECTION STAPHYLOCOCCAL [None]
  - WEIGHT DECREASED [None]
